FAERS Safety Report 5899656-6 (Version None)
Quarter: 2008Q3

REPORT INFORMATION
  Report Type: 
  Country: None (occurrence: None)
  Receive Date: 20080919
  Receipt Date: 20080828
  Transmission Date: 20090109
  Serious: No
  Sender: FDA-Public Use
  Company Number: US-WYE-H05779108

PATIENT
  Age: 28 Year
  Sex: Female

DRUGS (2)
  1. PRISTIQ [Suspect]
     Indication: DEPRESSION
     Dosage: 50 MG 1X PER 3 DAY ; 50 MG 1X PER 1 DAY, ORAL
     Dates: start: 20080501, end: 20080701
  2. PRISTIQ [Suspect]
     Indication: DEPRESSION
     Dosage: 50 MG 1X PER 3 DAY ; 50 MG 1X PER 1 DAY, ORAL
     Dates: start: 20080701

REACTIONS (3)
  - DIZZINESS [None]
  - DRUG WITHDRAWAL SYNDROME [None]
  - PARAESTHESIA [None]
